FAERS Safety Report 8886869 (Version 1)
Quarter: 2012Q4

REPORT INFORMATION
  Report Type: 
  Country: US (occurrence: US)
  Receive Date: 20121105
  Receipt Date: 20121105
  Transmission Date: 20130627
  Serious: Yes (Death)
  Sender: FDA-Public Use
  Company Number: US-PFIZER INC-2012273051

PATIENT
  Age: 81 Year
  Sex: Female

DRUGS (1)
  1. XALKORI [Suspect]
     Indication: BREAST CANCER FEMALE
     Dosage: 250 mg, UNK
     Dates: start: 20110909

REACTIONS (1)
  - Death [Fatal]
